FAERS Safety Report 7516041-1 (Version None)
Quarter: 2011Q2

REPORT INFORMATION
  Report Type: 
  Country: None (occurrence: None)
  Receive Date: 20110601
  Receipt Date: 20110519
  Transmission Date: 20111010
  Serious: Yes (Death, Hospitalization)
  Sender: FDA-Public Use
  Company Number: FR-ACTELION-A-CH2007-17985

PATIENT
  Sex: Male
  Weight: 65 kg

DRUGS (7)
  1. ZOLOFT [Concomitant]
  2. CEREZYME [Concomitant]
  3. MADOPAR [Concomitant]
  4. ZAVESCA [Suspect]
     Indication: GAUCHER'S DISEASE
     Dosage: 100 MG, TID
     Route: 048
     Dates: start: 20070201, end: 20070516
  5. EXELON [Concomitant]
  6. CALCIUM D3 [Concomitant]
  7. SINEMET [Concomitant]

REACTIONS (7)
  - PARKINSON'S DISEASE [None]
  - SEPSIS [None]
  - CONDITION AGGRAVATED [None]
  - PROSTATITIS [None]
  - DRUG TOLERANCE DECREASED [None]
  - RESPIRATORY ARREST [None]
  - GAUCHER'S DISEASE [None]
